FAERS Safety Report 7150861-0 (Version None)
Quarter: 2010Q4

REPORT INFORMATION
  Report Type: 
  Country: None (occurrence: None)
  Receive Date: 20101124
  Receipt Date: 20101116
  Transmission Date: 20110411
  Serious: Yes (Hospitalization)
  Sender: FDA-Public Use
  Company Number: KV200800377

PATIENT
  Age: 78 Year
  Sex: Male
  Weight: 74.8 kg

DRUGS (10)
  1. MORPHINE SULFATE [Suspect]
     Indication: SPINAL COLUMN STENOSIS
     Dosage: 30 MG, TID, ORAL
     Route: 048
     Dates: start: 20060213, end: 20081226
  2. MORPHINE SULFATE [Suspect]
     Indication: BACK PAIN
     Dosage: 30 MG, BID, ORAL
     Route: 048
     Dates: start: 20081201, end: 20090923
  3. LOPRESSOR [Concomitant]
  4. COUMADIN [Concomitant]
  5. AMITRIPTYLINE [Concomitant]
  6. ADVAIR DISKUS 100/50 [Concomitant]
  7. PERCOCET [Concomitant]
  8. XANAX [Concomitant]
  9. COREG [Concomitant]
  10. RANEXA [Concomitant]

REACTIONS (43)
  - ANAEMIA [None]
  - ANGINA UNSTABLE [None]
  - ANXIETY [None]
  - ASTHENIA [None]
  - ASTHMA [None]
  - BLOOD LACTATE DEHYDROGENASE INCREASED [None]
  - BRADYARRHYTHMIA [None]
  - BRONCHIECTASIS [None]
  - CARDIAC FAILURE CONGESTIVE [None]
  - COR PULMONALE CHRONIC [None]
  - DEEP VEIN THROMBOSIS [None]
  - DIZZINESS [None]
  - DYSPNOEA [None]
  - DYSTHYMIC DISORDER [None]
  - GENERAL PHYSICAL HEALTH DETERIORATION [None]
  - HYPERCHOLESTEROLAEMIA [None]
  - HYPOTENSION [None]
  - HYPOXIA [None]
  - INSOMNIA [None]
  - LABORATORY TEST ABNORMAL [None]
  - LETHARGY [None]
  - LUNG DISORDER [None]
  - METASTASES TO LIVER [None]
  - METASTATIC RENAL CELL CARCINOMA [None]
  - MITRAL VALVE DISEASE [None]
  - NEPHROLITHIASIS [None]
  - OVERDOSE [None]
  - PAIN [None]
  - PERIPHERAL EMBOLISM [None]
  - PERIPHERAL VASCULAR DISORDER [None]
  - POST PROCEDURAL HAEMORRHAGE [None]
  - PRESYNCOPE [None]
  - PRODUCT QUALITY ISSUE [None]
  - RENAL CYST [None]
  - RENAL CYST HAEMORRHAGE [None]
  - RENAL FAILURE CHRONIC [None]
  - RENAL HAEMATOMA [None]
  - RETROPERITONEAL HAEMORRHAGE [None]
  - SEDATION [None]
  - SOMNOLENCE [None]
  - TRANSAMINASES INCREASED [None]
  - TRICUSPID VALVE DISEASE [None]
  - VENOUS INSUFFICIENCY [None]
